FAERS Safety Report 13780815 (Version 1)
Quarter: 2017Q3

REPORT INFORMATION
  Report Type: Spontaneous
  Country: US (occurrence: US)
  Receive Date: 20170721
  Receipt Date: 20170721
  Transmission Date: 20171127
  Serious: No
  Sender: FDA-Public Use
  Company Number: None

PATIENT
  Age: 46 Year
  Sex: Female

DRUGS (3)
  1. HYDROCORTIZONE [Suspect]
     Active Substance: HYDROCORTISONE
     Indication: SPINAL COLUMN STENOSIS
  2. HYDROCORTIZONE [Suspect]
     Active Substance: HYDROCORTISONE
     Indication: PAIN
  3. HYDROCODONE [Suspect]
     Active Substance: HYDROCODONE

REACTIONS (2)
  - Drug dispensing error [None]
  - Intercepted drug dispensing error [None]

NARRATIVE: CASE EVENT DATE: 20170720
